FAERS Safety Report 15866704 (Version 2)
Quarter: 2019Q1

REPORT INFORMATION
  Report Type: Report from Study
  Country: DE (occurrence: DE)
  Receive Date: 20190125
  Receipt Date: 20190201
  Transmission Date: 20190417
  Serious: Yes (Death, Hospitalization)
  Sender: FDA-Public Use
  Company Number: DE-ROCHE-2240496

PATIENT
  Age: 46 Year
  Sex: Female
  Weight: 64.5 kg

DRUGS (34)
  1. CLEXANE [Concomitant]
     Active Substance: ENOXAPARIN SODIUM
     Indication: THROMBOSIS PROPHYLAXIS
     Dosage: DOSE: 4.000 (UNIT: OTHER)
     Route: 058
     Dates: start: 20181206
  2. PARACETAMOL [Concomitant]
     Active Substance: ACETAMINOPHEN
     Indication: BACK PAIN
     Route: 042
     Dates: start: 20181213, end: 20181213
  3. PREDNISON [Concomitant]
     Active Substance: PREDNISONE
     Route: 048
     Dates: start: 20181218, end: 20181221
  4. MEROPENEM. [Concomitant]
     Active Substance: MEROPENEM
     Route: 058
     Dates: start: 20190106
  5. NEUPOGEN [Concomitant]
     Active Substance: FILGRASTIM
     Indication: FULL BLOOD COUNT
     Route: 058
     Dates: start: 20190112, end: 20190113
  6. OXYCODON [Concomitant]
     Active Substance: OXYCODONE
     Dosage: OXYCODON PERFUSOR
     Route: 040
     Dates: start: 20190112
  7. ECURAL [Concomitant]
     Active Substance: MOMETASONE
     Indication: RASH
     Dosage: CREME
     Route: 065
     Dates: start: 20181218
  8. ADVANTAN [Concomitant]
     Active Substance: METHYLPREDNISOLONE ACEPONATE
     Indication: RASH
     Route: 065
     Dates: start: 20181218, end: 20190101
  9. LINEZOLID. [Concomitant]
     Active Substance: LINEZOLID
     Route: 042
     Dates: start: 20190110
  10. JONOSTERIL [Concomitant]
     Route: 042
     Dates: start: 20190104
  11. NACL [Concomitant]
     Active Substance: SODIUM CHLORIDE
     Route: 042
     Dates: start: 20190111, end: 20190113
  12. VERGENTAN [Concomitant]
     Active Substance: ALIZAPRIDE HYDROCHLORIDE
     Indication: NAUSEA
     Route: 042
     Dates: start: 20190110
  13. PALLADON [Concomitant]
     Active Substance: HYDROMORPHONE
     Route: 048
     Dates: start: 20190107, end: 20190108
  14. MST (GERMANY) [Concomitant]
     Route: 048
     Dates: start: 20181227, end: 20190106
  15. BUSCOPAN [Concomitant]
     Active Substance: BUTYLSCOPOLAMINE BROMIDE
     Indication: ABDOMINAL PAIN UPPER
     Dosage: BUSCOPAN DRAGEES
     Route: 048
     Dates: start: 20181227, end: 20190101
  16. NACL [Concomitant]
     Active Substance: SODIUM CHLORIDE
     Indication: HYPONATRAEMIA
     Route: 048
     Dates: start: 20190109, end: 20190110
  17. TRANEXAMIC ACID. [Concomitant]
     Active Substance: TRANEXAMIC ACID
     Dosage: TRANEXAMSAURE
     Route: 042
     Dates: start: 20190112
  18. LASIX [Concomitant]
     Active Substance: FUROSEMIDE
     Route: 042
     Dates: start: 20190114
  19. PEGPH20 [Suspect]
     Active Substance: PEGVORHYALURONIDASE ALFA
     Indication: PANCREATIC CARCINOMA METASTATIC
     Dosage: DATE OF MOST RECENT DOSE  (192 MG) PEGVORHYALURONIDASE ALFA PRIOR TO THE ONSET OF ADVERSE EVENT: 13/
     Route: 042
     Dates: start: 20181206
  20. PARACETAMOL [Concomitant]
     Active Substance: ACETAMINOPHEN
     Indication: PAIN
     Route: 048
     Dates: start: 20181227, end: 20190101
  21. PREDNISON [Concomitant]
     Active Substance: PREDNISONE
     Route: 048
     Dates: start: 20181222, end: 20181231
  22. MST (GERMANY) [Concomitant]
     Route: 048
     Dates: start: 20190109
  23. AMOXI [Concomitant]
     Active Substance: AMOXICILLIN
     Route: 048
     Dates: start: 20181228, end: 20190102
  24. HALDOL [Concomitant]
     Active Substance: HALOPERIDOL
     Route: 048
     Dates: start: 20190103
  25. ATEZOLIZUMAB. [Suspect]
     Active Substance: ATEZOLIZUMAB
     Indication: PANCREATIC CARCINOMA METASTATIC
     Dosage: DATE OF MOST RECENT DOSE ATEZOLIZUMAB (1200 MG) PRIOR TO THE ONSET ADVERSE EVENT: 13/DEC/2018
     Route: 042
     Dates: start: 20181213
  26. PIROXICAM. [Concomitant]
     Active Substance: PIROXICAM
     Indication: MYALGIA
     Route: 048
     Dates: start: 20181206
  27. PANTOPRAZOL [Concomitant]
     Active Substance: PANTOPRAZOLE SODIUM
     Indication: PAIN
     Route: 048
     Dates: start: 20181206
  28. CLEMASTIN [Concomitant]
     Active Substance: CLEMASTINE
     Indication: CHILLS
     Route: 042
     Dates: start: 20181213, end: 20181213
  29. TAZOBAC [Concomitant]
     Active Substance: PIPERACILLIN SODIUM\TAZOBACTAM SODIUM
     Indication: INFECTION PROPHYLAXIS
     Route: 042
     Dates: start: 20181206
  30. MCP [Concomitant]
     Active Substance: METOCLOPRAMIDE HYDROCHLORIDE
     Route: 048
     Dates: start: 20190104
  31. BIFITERAL [Concomitant]
     Active Substance: LACTULOSE
     Indication: CONSTIPATION
     Route: 048
     Dates: start: 20190110
  32. CLEXANE [Concomitant]
     Active Substance: ENOXAPARIN SODIUM
     Route: 058
     Dates: start: 20181206
  33. NOVALGIN (METAMIZOLE SODIUM) [Concomitant]
     Active Substance: METAMIZOLE SODIUM
     Indication: PYREXIA
     Route: 048
     Dates: start: 20181206
  34. PANTOZOL [Concomitant]
     Active Substance: PANTOPRAZOLE SODIUM
     Route: 042
     Dates: start: 20190111

REACTIONS (1)
  - Fatigue [Not Recovered/Not Resolved]

NARRATIVE: CASE EVENT DATE: 20190102
